FAERS Safety Report 8989375 (Version 1)
Quarter: 2012Q4

REPORT INFORMATION
  Report Type: 
  Country: FR (occurrence: FR)
  Receive Date: 20121227
  Receipt Date: 20121227
  Transmission Date: 20130627
  Serious: Yes (Other)
  Sender: FDA-Public Use
  Company Number: FR-GILEAD-2012-0066932

PATIENT
  Age: 44 Year
  Sex: Male

DRUGS (13)
  1. TRUVADA [Suspect]
     Indication: HIV INFECTION
     Dosage: 1 DF, QD
     Dates: start: 20120705, end: 20120707
  2. TRUVADA [Suspect]
     Dosage: UNK
     Dates: start: 20120713, end: 20120717
  3. MALOCIDE [Suspect]
     Indication: PROPHYLAXIS
     Dosage: 100 mg, QD
     Dates: start: 20120705, end: 20120717
  4. CELSENTRI [Suspect]
     Indication: HIV INFECTION
     Dosage: UNK
     Dates: start: 20120705, end: 20120707
  5. CELSENTRI [Suspect]
     Dosage: UNK
     Dates: start: 20120713, end: 20120717
  6. REYATAZ [Suspect]
     Indication: HIV INFECTION
     Dosage: UNK
     Dates: start: 20120705, end: 20120707
  7. NORVIR [Suspect]
     Indication: HIV INFECTION
     Dosage: UNK
     Dates: start: 20120705, end: 20120707
  8. LEDERFOLINE [Suspect]
  9. PENTACARINAT [Suspect]
     Dosage: UNK
     Dates: end: 20120717
  10. ISENTRESS [Suspect]
     Dosage: UNK
     Dates: start: 20120713, end: 20120717
  11. PRIMPERAN [Concomitant]
     Dosage: UNK, prn
     Dates: start: 20120711, end: 20120713
  12. IMODIUM [Concomitant]
     Dosage: UNK, prn
     Dates: start: 20120711, end: 20120713
  13. PENTASA [Concomitant]
     Indication: COLITIS ULCERATIVE
     Dosage: 2 g, BID

REACTIONS (7)
  - Pancytopenia [Recovering/Resolving]
  - Enanthema [Recovering/Resolving]
  - Jaundice [Recovered/Resolved]
  - Diarrhoea [Recovered/Resolved]
  - Nausea [Recovered/Resolved]
  - Rash generalised [Recovering/Resolving]
  - Pruritus [Recovering/Resolving]
